FAERS Safety Report 12593865 (Version 1)
Quarter: 2016Q3

REPORT INFORMATION
  Report Type: Spontaneous
  Country: US (occurrence: US)
  Receive Date: 20160726
  Receipt Date: 20160726
  Transmission Date: 20161109
  Serious: No
  Sender: FDA-Public Use
  Company Number: US-BAYER-2016-139285

PATIENT
  Age: 30 Year
  Sex: Female

DRUGS (2)
  1. ALEVE [Suspect]
     Active Substance: NAPROXEN SODIUM
     Indication: ANALGESIC THERAPY
     Dosage: 4 DF, IN A 24 HOUR PERIOD
     Dates: start: 20160714, end: 20160714
  2. VICODIN [Concomitant]
     Active Substance: ACETAMINOPHEN\HYDROCODONE BITARTRATE
     Dosage: 0.5 DF, UNK
     Dates: start: 20160713

REACTIONS (3)
  - Feeling abnormal [None]
  - Heart rate abnormal [None]
  - Product use issue [Recovered/Resolved]

NARRATIVE: CASE EVENT DATE: 20160714
